FAERS Safety Report 25504148 (Version 3)
Quarter: 2025Q3

REPORT INFORMATION
  Report Type: Report from Study
  Country: US (occurrence: US)
  Receive Date: 20250702
  Receipt Date: 20250818
  Transmission Date: 20251021
  Serious: No
  Sender: ACADIA PHARMACEUTICALS
  Company Number: US-ACADIA PHARMACEUTICALS INC.-ACA-2025-PIM-007736

PATIENT
  Sex: Male

DRUGS (16)
  1. NUPLAZID [Suspect]
     Active Substance: PIMAVANSERIN TARTRATE
     Indication: Parkinson^s disease psychosis
     Dosage: 34 MILLIGRAM, QD
     Route: 048
  2. NUPLAZID [Suspect]
     Active Substance: PIMAVANSERIN TARTRATE
     Indication: Parkinson^s disease
  3. NUPLAZID [Suspect]
     Active Substance: PIMAVANSERIN TARTRATE
     Indication: Hallucination
  4. NUPLAZID [Suspect]
     Active Substance: PIMAVANSERIN TARTRATE
     Indication: Delusion
  5. GOCOVRI [Concomitant]
     Active Substance: AMANTADINE
  6. ASPIRIN [Concomitant]
     Active Substance: ASPIRIN
  7. ATORVASTATIN [Concomitant]
     Active Substance: ATORVASTATIN
  8. BUPRENORPHINE [Concomitant]
     Active Substance: BUPRENORPHINE
     Route: 060
  9. CELEBREX [Concomitant]
     Active Substance: CELECOXIB
  10. CLOPIDOGREL [Concomitant]
     Active Substance: CLOPIDOGREL BISULFATE
  11. MAGNESIUM [Concomitant]
     Active Substance: MAGNESIUM
  12. MYRBETRIQ [Concomitant]
     Active Substance: MIRABEGRON
  13. HIGH DENSITY POLYETHYLENE [Concomitant]
     Active Substance: HIGH DENSITY POLYETHYLENE
  14. RASAGILINE MESYLATE [Concomitant]
     Active Substance: RASAGILINE MESYLATE
  15. RYTARY [Concomitant]
     Active Substance: CARBIDOPA\LEVODOPA
  16. PROBIOTICS [PROBIOTICS NOS] [Concomitant]

REACTIONS (3)
  - Aphonia [Not Recovered/Not Resolved]
  - Confusional state [Recovered/Resolved]
  - Confusional state [Not Recovered/Not Resolved]
